FAERS Safety Report 8666070 (Version 2)
Quarter: 2013Q2

REPORT INFORMATION
  Report Type: Spontaneous
  Country: US (occurrence: None)
  Receive Date: 20120614
  Receipt Date: 20130412
  Transmission Date: 20140414
  Serious: Yes (Other)
  Sender: FDA-Public Use
  Company Number: 2012032557

PATIENT
  Age: 61 Year
  Sex: Female
  Weight: 90.72 kg

DRUGS (1)
  1. HIZENTRA [Suspect]
     Indication: IMMUNODEFICIENCY
     Dosage: (0.2 GM/ML WEEKLY SUBCUTANEOUS)
     Dates: start: 20110408, end: 20110530

REACTIONS (3)
  - Heart rate decreased [None]
  - Cardiac disorder [None]
  - Peripheral vascular disorder [None]
